FAERS Safety Report 23638573 (Version 5)
Quarter: 2024Q2

REPORT INFORMATION
  Report Type: Spontaneous
  Country: FR (occurrence: FR)
  Receive Date: 20240315
  Receipt Date: 20240612
  Transmission Date: 20240716
  Serious: Yes (Hospitalization, Other)
  Sender: FDA-Public Use
  Company Number: FR-009507513-2403FRA004232

PATIENT
  Age: 61 Year
  Sex: Female
  Weight: 54 kg

DRUGS (4)
  1. KEYTRUDA [Suspect]
     Active Substance: PEMBROLIZUMAB
     Indication: Triple negative breast cancer
     Dosage: 200 MILLIGRAM, Q3W, 4 INJECTIONS AS NEOADJUVANT TREATMENT
     Route: 042
     Dates: start: 20220627
  2. KEYTRUDA [Suspect]
     Active Substance: PEMBROLIZUMAB
     Dosage: 200 MILLIGRAM, Q3W, 5 INJECTIONS AS ADJUVANT TREATMENT
     Route: 042
     Dates: end: 20230315
  3. CARBOPLATIN [Suspect]
     Active Substance: CARBOPLATIN
     Indication: Triple negative breast cancer
     Dosage: AREA UNDER THE CURVE (AUC) 5
     Route: 042
     Dates: start: 20220627, end: 20220914
  4. PACLITAXEL [Suspect]
     Active Substance: PACLITAXEL
     Indication: Triple negative breast cancer
     Dosage: 80 MG/M2
     Route: 042
     Dates: start: 20220627, end: 20220914

REACTIONS (2)
  - Colonic abscess [Unknown]
  - Rectosigmoid cancer [Unknown]

NARRATIVE: CASE EVENT DATE: 20220914
